FAERS Safety Report 8269734-5 (Version None)
Quarter: 2012Q2

REPORT INFORMATION
  Report Type: 
  Country: None (occurrence: None)
  Receive Date: 20120405
  Receipt Date: 20120330
  Transmission Date: 20120825
  Serious: Yes (Hospitalization)
  Sender: FDA-Public Use
  Company Number: 120125

PATIENT
  Age: 70 Year
  Sex: Female
  Weight: 68.0396 kg

DRUGS (6)
  1. SUPREP BOWEL PREP KIT [Suspect]
     Indication: COLONOSCOPY
     Dates: end: 20120307
  2. LISINOPRIL [Concomitant]
  3. CLARITIN [Concomitant]
  4. SINGULAIR [Concomitant]
  5. LIDODERM [Concomitant]
  6. SUMATRIPTAN [Concomitant]

REACTIONS (2)
  - LOSS OF CONSCIOUSNESS [None]
  - CARDIAC ARREST [None]
